APPROVED DRUG PRODUCT: ACETYLCYSTEINE
Active Ingredient: ACETYLCYSTEINE
Strength: 10%
Dosage Form/Route: SOLUTION;INHALATION, ORAL
Application: A072323 | Product #001
Applicant: ROXANE LABORATORIES INC
Approved: Apr 30, 1992 | RLD: No | RS: No | Type: DISCN